APPROVED DRUG PRODUCT: LEVOTHYROXINE SODIUM
Active Ingredient: LEVOTHYROXINE SODIUM
Strength: 0.15MG
Dosage Form/Route: CAPSULE;ORAL
Application: A211369 | Product #002
Applicant: ANI PHARMACEUTICALS INC
Approved: Oct 28, 2020 | RLD: No | RS: No | Type: DISCN